FAERS Safety Report 13199698 (Version 1)
Quarter: 2017Q1

REPORT INFORMATION
  Report Type: Report from Study
  Country: NL (occurrence: NL)
  Receive Date: 20170208
  Receipt Date: 20170208
  Transmission Date: 20170428
  Serious: Yes (Other)
  Sender: FDA-Public Use
  Company Number: NL-MYLANLABS-2017M1007149

PATIENT

DRUGS (3)
  1. DOXORUBICIN [Suspect]
     Active Substance: DOXORUBICIN
     Indication: HEPATOBLASTOMA
     Dosage: 30MG/M2 (24H): DAYS 8,9,36,37,57 AND 58 (CYCLE A1-A2)
     Route: 041
  2. CISPLATIN. [Suspect]
     Active Substance: CISPLATIN
     Indication: HEPATOBLASTOMA
     Dosage: 80MG/M2/DAY (24H): DAY 1 (CYCLE A1).
     Route: 041
  3. CISPLATIN. [Suspect]
     Active Substance: CISPLATIN
     Dosage: 70MG/M2 (24H): DAYS 8,15,29,36,43,57 AND 64 (CYCLES A1-A2).
     Route: 041

REACTIONS (1)
  - Ototoxicity [Unknown]
